FAERS Safety Report 23512268 (Version 1)
Quarter: 2024Q1

REPORT INFORMATION
  Report Type: Report from Study
  Country: BE (occurrence: BE)
  Receive Date: 20240212
  Receipt Date: 20240212
  Transmission Date: 20240410
  Serious: Yes (Death, Other)
  Sender: FDA-Public Use
  Company Number: BE-JNJFOC-20240226800

PATIENT
  Age: 65 Year
  Sex: Male

DRUGS (2)
  1. REMICADE [Suspect]
     Active Substance: INFLIXIMAB
     Indication: Ankylosing spondylitis
     Route: 041
  2. METHYLPREDNISOLONE [Suspect]
     Active Substance: METHYLPREDNISOLONE
     Indication: Ankylosing spondylitis
     Dosage: METHYLPREDNISOLONE HD FOR 3 DAYS AND TAPERED TO MINIMALLY EFFECTIVE DOSE.
     Route: 065

REACTIONS (2)
  - Death [Fatal]
  - Immune-mediated hepatitis [Unknown]
